FAERS Safety Report 21694435 (Version 1)
Quarter: 2022Q4

REPORT INFORMATION
  Report Type: Spontaneous
  Country: US (occurrence: US)
  Receive Date: 20221207
  Receipt Date: 20221207
  Transmission Date: 20230113
  Serious: No
  Sender: FDA-Public Use
  Company Number: US-NOVOPROD-884701

PATIENT
  Sex: Male

DRUGS (1)
  1. NOVOLIN N [Suspect]
     Active Substance: INSULIN HUMAN
     Indication: Type 1 diabetes mellitus
     Dosage: 40 UNITS A DAY
     Route: 058
     Dates: start: 202108

REACTIONS (4)
  - Blood pressure decreased [Recovered/Resolved]
  - Arthropathy [Recovering/Resolving]
  - Blood glucose increased [Recovered/Resolved]
  - Liquid product physical issue [Not Recovered/Not Resolved]

NARRATIVE: CASE EVENT DATE: 20211201
